FAERS Safety Report 12583060 (Version 1)
Quarter: 2016Q3

REPORT INFORMATION
  Report Type: Spontaneous
  Country: UY (occurrence: UY)
  Receive Date: 20160722
  Receipt Date: 20160722
  Transmission Date: 20161109
  Serious: Yes (Hospitalization)
  Sender: FDA-Public Use
  Company Number: UY-BAYER-2016-136440

PATIENT
  Age: 39 Year
  Sex: Female

DRUGS (1)
  1. AVELOX [Suspect]
     Active Substance: MOXIFLOXACIN HYDROCHLORIDE
     Indication: TRACHEOBRONCHITIS
     Dosage: UNK
     Dates: start: 20160628, end: 20160705

REACTIONS (7)
  - Cough [Unknown]
  - Product use issue [Unknown]
  - Chest pain [Unknown]
  - Myalgia [Unknown]
  - Eosinophilia [Unknown]
  - Pyrexia [Unknown]
  - Viral infection [Unknown]
